FAERS Safety Report 6301670-3 (Version None)
Quarter: 2009Q3

REPORT INFORMATION
  Report Type: 
  Country: None (occurrence: None)
  Receive Date: 20090807
  Receipt Date: 20090729
  Transmission Date: 20100115
  Serious: Yes (Other)
  Sender: FDA-Public Use
  Company Number: PHHY2009CA23931

PATIENT
  Sex: Female

DRUGS (10)
  1. ACLASTA [Suspect]
     Indication: OSTEOPOROSIS
     Dosage: 5 MG
     Dates: start: 20090610
  2. VITAMIN D [Concomitant]
  3. CALCIUM [Concomitant]
  4. AVAPRO [Concomitant]
     Dosage: 75 MG DAILY
     Route: 048
  5. LASIX [Concomitant]
     Dosage: 40 MG DAILY
     Route: 048
  6. CELLCEPT [Concomitant]
     Dosage: 500 MG, BID
     Route: 048
  7. PREDNISONE [Concomitant]
     Dosage: 7.5 MG
  8. LIPITOR [Concomitant]
     Dosage: 20 MG
  9. SYNTHROID [Concomitant]
     Dosage: 0.1 MG DAILY
     Route: 048
  10. CORTICOTHERAPY [Concomitant]
     Indication: LUPUS NEPHRITIS

REACTIONS (2)
  - ASTHENIA [None]
  - BLOOD PRESSURE DECREASED [None]
